FAERS Safety Report 7828566-X (Version None)
Quarter: 2011Q4

REPORT INFORMATION
  Report Type: 
  Country: None (occurrence: None)
  Receive Date: 20111020
  Receipt Date: 20111020
  Transmission Date: 20120403
  Serious: Yes (Death)
  Sender: FDA-Public Use
  Company Number: None

PATIENT
  Sex: Male
  Weight: 72 kg

DRUGS (3)
  1. BUSULFAN [Concomitant]
  2. LYMPHOCYTE IMMUNE GLOBULIN [Suspect]
     Indication: BONE MARROW CONDITIONING REGIMEN
     Dosage: 860 MG
     Route: 041
     Dates: start: 20111015, end: 20111016
  3. FLUDARABINE PHOSPHATE [Concomitant]

REACTIONS (10)
  - PYREXIA [None]
  - INJECTION SITE HAEMORRHAGE [None]
  - PUPIL FIXED [None]
  - HEADACHE [None]
  - CHILLS [None]
  - RENAL IMPAIRMENT [None]
  - ECCHYMOSIS [None]
  - DISSEMINATED INTRAVASCULAR COAGULATION [None]
  - MENTAL STATUS CHANGES [None]
  - CONFUSIONAL STATE [None]
